FAERS Safety Report 9340209 (Version 1)
Quarter: 2013Q2

REPORT INFORMATION
  Report Type: Spontaneous
  Country: GB (occurrence: None)
  Receive Date: 20130605
  Receipt Date: 20130605
  Transmission Date: 20140414
  Serious: Yes (Hospitalization, Other)
  Sender: FDA-Public Use
  Company Number: CL-491-2013

PATIENT
  Age: 50 Year
  Sex: Male

DRUGS (7)
  1. CIPROFLOXACIN [Suspect]
     Indication: UROSEPSIS
     Route: 042
  2. OFLOXACIN [Suspect]
     Indication: DIARRHOEA
  3. GLICLAZIDE [Concomitant]
  4. VILDAGLIPTIN [Concomitant]
  5. METFORMIN [Concomitant]
  6. TELMISARTAN [Concomitant]
  7. ATORVSTATIN [Concomitant]

REACTIONS (1)
  - Hypoglycaemia [None]
